FAERS Safety Report 20880420 (Version 1)
Quarter: 2022Q2

REPORT INFORMATION
  Report Type: Spontaneous
  Country: US (occurrence: US)
  Receive Date: 20220526
  Receipt Date: 20220526
  Transmission Date: 20220720
  Serious: No
  Sender: FDA-Public Use
  Company Number: US-RADIUS HEALTH INC.-2021US005614

PATIENT
  Sex: Female
  Weight: 43.084 kg

DRUGS (5)
  1. TYMLOS [Suspect]
     Active Substance: ABALOPARATIDE
     Indication: Osteoporotic fracture
     Dosage: 80 MICROGRAM, QD
     Route: 058
  2. TYMLOS [Suspect]
     Active Substance: ABALOPARATIDE
     Indication: Senile osteoporosis
  3. TYMLOS [Suspect]
     Active Substance: ABALOPARATIDE
     Indication: Osteoarthritis
  4. TYMLOS [Suspect]
     Active Substance: ABALOPARATIDE
     Indication: Rheumatoid arthritis
  5. TYMLOS [Suspect]
     Active Substance: ABALOPARATIDE
     Indication: Bone density abnormal

REACTIONS (2)
  - Musculoskeletal stiffness [Unknown]
  - Headache [Unknown]
